FAERS Safety Report 7377983-3 (Version None)
Quarter: 2011Q1

REPORT INFORMATION
  Report Type: 
  Country: None (occurrence: None)
  Receive Date: 20110316
  Receipt Date: 20110308
  Transmission Date: 20110831
  Serious: Yes (Death)
  Sender: FDA-Public Use
  Company Number: TRP_07593_2011

PATIENT
  Sex: Male
  Weight: 62.2335 kg

DRUGS (8)
  1. PROMETHAZINE [Concomitant]
  2. INFERGEN [Suspect]
     Indication: HEPATITIS C
     Dosage: (15 UG QD SUBCUTANEOUS)
     Route: 058
     Dates: start: 20101124, end: 20110301
  3. ALBUTEROL [Concomitant]
  4. OXYCODONE HCL [Concomitant]
  5. ZYPREXA [Concomitant]
  6. RIBAVIRIN [Suspect]
     Indication: HEPATITIS C
     Dosage: (1200 UG, DAILY ORAL)
     Route: 048
     Dates: start: 20101124, end: 20110301
  7. SERTRALINE HYDROCHLORIDE [Concomitant]
  8. OMEPRAZOLE [Concomitant]

REACTIONS (12)
  - RESPIRATORY FAILURE [None]
  - HEPATIC NECROSIS [None]
  - RENAL FAILURE ACUTE [None]
  - TROPONIN INCREASED [None]
  - HEPATIC ISCHAEMIA [None]
  - HYPOXIC-ISCHAEMIC ENCEPHALOPATHY [None]
  - UNRESPONSIVE TO STIMULI [None]
  - CARDIAC ARREST [None]
  - VENTRICULAR FIBRILLATION [None]
  - PO2 INCREASED [None]
  - PCO2 INCREASED [None]
  - HAEMOGLOBIN DECREASED [None]
